FAERS Safety Report 8873952 (Version 1)
Quarter: 2012Q4

REPORT INFORMATION
  Report Type: 
  Country: IT (occurrence: PK)
  Receive Date: 20121030
  Receipt Date: 20121030
  Transmission Date: 20130627
  Serious: Yes (Death)
  Sender: FDA-Public Use
  Company Number: IT-MEDICIS-2012P1061555

PATIENT
  Age: 14 Year
  Sex: Male

DRUGS (1)
  1. SODIUM PHENYLBUTYRATE [Suspect]
     Indication: ARGINASE DEFICIENCY
     Route: 048
     Dates: start: 20100125

REACTIONS (3)
  - Vertigo [Fatal]
  - Dizziness [Fatal]
  - Coma [Fatal]
